FAERS Safety Report 17940396 (Version 1)
Quarter: 2020Q2

REPORT INFORMATION
  Report Type: Spontaneous
  Country: US (occurrence: US)
  Receive Date: 20200623
  Receipt Date: 20200623
  Transmission Date: 20200714
  Serious: No
  Sender: FDA-Public Use
  Company Number: None

PATIENT
  Age: 53 Year
  Sex: Female
  Weight: 58.51 kg

DRUGS (2)
  1. METHOTREXATE 50MG/2ML MDV, 50MG/2ML [Suspect]
     Active Substance: METHOTREXATE
     Indication: OSTEOARTHRITIS
  2. METHOTREXATE 50MG/2ML MDV, 50MG/2ML [Suspect]
     Active Substance: METHOTREXATE
     Indication: INTERVERTEBRAL DISC DISORDER
     Route: 058
     Dates: start: 201911

REACTIONS (2)
  - Therapy interrupted [None]
  - COVID-19 [None]
